FAERS Safety Report 15220258 (Version 1)
Quarter: 2018Q3

REPORT INFORMATION
  Report Type: Spontaneous
  Country: US (occurrence: US)
  Receive Date: 20180731
  Receipt Date: 20180731
  Transmission Date: 20181010
  Serious: Yes (Hospitalization, Other)
  Sender: FDA-Public Use
  Company Number: US-EMMAUS MEDICAL, INC.-EMM201805-000101

PATIENT
  Sex: Male

DRUGS (7)
  1. DOCQLACE EQ [Concomitant]
  2. LORATADINE. [Concomitant]
     Active Substance: LORATADINE
  3. HYDROXYUREA. [Concomitant]
     Active Substance: HYDROXYUREA
  4. TOPIRAMATE. [Concomitant]
     Active Substance: TOPIRAMATE
  5. ENDARI [Suspect]
     Active Substance: GLUTAMINE
     Indication: SICKLE CELL DISEASE
     Route: 048
     Dates: start: 20180316
  6. FOLIC ACID. [Concomitant]
     Active Substance: FOLIC ACID
  7. LOSARTAN POTASSIUM. [Concomitant]
     Active Substance: LOSARTAN POTASSIUM

REACTIONS (2)
  - Drug dose omission [Unknown]
  - Sickle cell anaemia with crisis [Unknown]
